FAERS Safety Report 11878864 (Version 1)
Quarter: 2015Q4

REPORT INFORMATION
  Report Type: Spontaneous
  Country: AU (occurrence: AU)
  Receive Date: 20151230
  Receipt Date: 20151230
  Transmission Date: 20160305
  Serious: Yes (Hospitalization)
  Sender: FDA-Public Use
  Company Number: AU-DRREDDYS-USA/AUS/15/0054972

PATIENT
  Age: 52 Year
  Sex: Female

DRUGS (4)
  1. ASENAPINE [Interacting]
     Active Substance: ASENAPINE
     Indication: SCHIZOPHRENIA
     Route: 065
  2. CLOZAPINE. [Concomitant]
     Active Substance: CLOZAPINE
     Indication: SCHIZOPHRENIA
     Route: 065
  3. QUETIAPINE [Suspect]
     Active Substance: QUETIAPINE
     Indication: SCHIZOPHRENIA
     Route: 065
  4. ASENAPINE [Interacting]
     Active Substance: ASENAPINE
     Route: 065

REACTIONS (2)
  - Congestive cardiomyopathy [Recovered/Resolved]
  - Myocarditis [Recovered/Resolved]
